FAERS Safety Report 10368082 (Version 2)
Quarter: 2014Q3

REPORT INFORMATION
  Report Type: Spontaneous
  Country: JP (occurrence: JP)
  Receive Date: 20140807
  Receipt Date: 20140807
  Transmission Date: 20150326
  Serious: Yes (Other)
  Sender: FDA-Public Use
  Company Number: JP-JNJFOC-20140515777

PATIENT
  Age: 58 Year
  Sex: Female

DRUGS (3)
  1. NAUZELIN [Concomitant]
     Active Substance: DOMPERIDONE
     Dosage: 19 MG ONCE A DAY
     Route: 065
     Dates: start: 20140520, end: 20140520
  2. PREDONINE [Concomitant]
     Active Substance: PREDNISOLONE\PREDNISOLONE ACETATE\PREDNISOLONE SODIUM SUCCINATE
     Route: 065
  3. TRAMCET [Suspect]
     Active Substance: ACETAMINOPHEN\TRAMADOL
     Indication: PAIN
     Dosage: 1 DOSE PER 1 DAY, BEFORE BEDTIME
     Route: 048
     Dates: start: 20140520, end: 20140520

REACTIONS (1)
  - Erythema multiforme [Recovered/Resolved]

NARRATIVE: CASE EVENT DATE: 20140521
